FAERS Safety Report 9769594 (Version 1)
Quarter: 2013Q4

REPORT INFORMATION
  Report Type: Spontaneous
  Country: US (occurrence: US)
  Receive Date: 20131218
  Receipt Date: 20131218
  Transmission Date: 20140711
  Serious: Yes (Other)
  Sender: FDA-Public Use
  Company Number: US-SHIRE-ALL1-2013-08757

PATIENT
  Age: 3 Year
  Sex: Male

DRUGS (1)
  1. ELAPRASE [Suspect]
     Indication: MUCOPOLYSACCHARIDOSIS II
     Dosage: UNK, UNKNOWN
     Route: 041
     Dates: start: 20061204

REACTIONS (1)
  - Hernia obstructive [Unknown]
